FAERS Safety Report 25337842 (Version 1)
Quarter: 2025Q2

REPORT INFORMATION
  Report Type: Spontaneous
  Country: FR (occurrence: FR)
  Receive Date: 20250520
  Receipt Date: 20250520
  Transmission Date: 20250716
  Serious: Yes (Other)
  Sender: MYLAN
  Company Number: None

PATIENT
  Age: 36 Year
  Sex: Female
  Weight: 70 kg

DRUGS (8)
  1. ZOLOFT [Suspect]
     Active Substance: SERTRALINE HYDROCHLORIDE
     Indication: Anxiety disorder
     Dosage: 100 MILLIGRAM, QD
     Dates: start: 20180101
  2. ZOLOFT [Suspect]
     Active Substance: SERTRALINE HYDROCHLORIDE
     Dosage: 100 MILLIGRAM, QD
     Route: 048
     Dates: start: 20180101
  3. ZOLOFT [Suspect]
     Active Substance: SERTRALINE HYDROCHLORIDE
     Dosage: 100 MILLIGRAM, QD
     Route: 048
     Dates: start: 20180101
  4. ZOLOFT [Suspect]
     Active Substance: SERTRALINE HYDROCHLORIDE
     Dosage: 100 MILLIGRAM, QD
     Dates: start: 20180101
  5. XANAX [Concomitant]
     Active Substance: ALPRAZOLAM
     Indication: Anxiety disorder
  6. XANAX [Concomitant]
     Active Substance: ALPRAZOLAM
     Route: 048
  7. XANAX [Concomitant]
     Active Substance: ALPRAZOLAM
     Route: 048
  8. XANAX [Concomitant]
     Active Substance: ALPRAZOLAM

REACTIONS (2)
  - Foetal death [Recovered/Resolved]
  - Maternal exposure during pregnancy [Recovered/Resolved with Sequelae]

NARRATIVE: CASE EVENT DATE: 20250416
